FAERS Safety Report 7392467-4 (Version None)
Quarter: 2011Q2

REPORT INFORMATION
  Report Type: 
  Country: None (occurrence: None)
  Receive Date: 20110404
  Receipt Date: 20101229
  Transmission Date: 20111010
  Serious: No
  Sender: FDA-Public Use
  Company Number: US-BAYER-2011-026493

PATIENT
  Sex: Female

DRUGS (1)
  1. ONE A DAY WOMEN'S ACTIVE METABOLISM [Suspect]
     Indication: VITAMIN SUPPLEMENTATION
     Route: 048

REACTIONS (1)
  - ANXIETY [None]
